FAERS Safety Report 19885722 (Version 1)
Quarter: 2021Q3

REPORT INFORMATION
  Report Type: Spontaneous
  Country: US (occurrence: US)
  Receive Date: 20210927
  Receipt Date: 20210927
  Transmission Date: 20211014
  Serious: Yes (Other)
  Sender: FDA-Public Use
  Company Number: US-PBT-000660

PATIENT
  Age: 65 Year

DRUGS (9)
  1. RIFABUTIN. [Suspect]
     Active Substance: RIFABUTIN
     Indication: ACUTE KIDNEY INJURY
     Route: 065
  2. ISONIAZID. [Suspect]
     Active Substance: ISONIAZID
     Indication: UVEITIS
     Route: 065
  3. RIFABUTIN. [Suspect]
     Active Substance: RIFABUTIN
     Indication: UVEITIS
     Route: 065
  4. TACROLIMUS. [Suspect]
     Active Substance: TACROLIMUS
     Indication: UVEITIS
     Route: 065
  5. RIFABUTIN. [Suspect]
     Active Substance: RIFABUTIN
     Indication: HYPERCALCAEMIA
     Route: 065
  6. ISONIAZID. [Suspect]
     Active Substance: ISONIAZID
     Indication: HYPERCALCAEMIA
     Route: 065
  7. TACROLIMUS. [Suspect]
     Active Substance: TACROLIMUS
     Indication: ACUTE KIDNEY INJURY
     Route: 065
  8. TACROLIMUS. [Suspect]
     Active Substance: TACROLIMUS
     Indication: HYPERCALCAEMIA
     Route: 065
  9. ISONIAZID. [Suspect]
     Active Substance: ISONIAZID
     Indication: ACUTE KIDNEY INJURY
     Route: 065

REACTIONS (2)
  - Tubulointerstitial nephritis [Unknown]
  - Granuloma [Unknown]
